FAERS Safety Report 9515837 (Version 6)
Quarter: 2014Q3

REPORT INFORMATION
  Report Type: Spontaneous
  Country: US (occurrence: US)
  Receive Date: 20130911
  Receipt Date: 20140804
  Transmission Date: 20150326
  Serious: Yes (Hospitalization, Disabling, Other)
  Sender: FDA-Public Use
  Company Number: US-009507513-1309USA003659

PATIENT
  Sex: Female
  Weight: 74.83 kg

DRUGS (9)
  1. FOSAMAX [Suspect]
     Active Substance: ALENDRONATE SODIUM
     Indication: OSTEOPENIA
     Dosage: 70 MG, QW
     Route: 048
     Dates: start: 20020417
  2. ASPIRIN. [Concomitant]
     Active Substance: ASPIRIN
     Indication: CARDIAC DISORDER
     Dosage: UNK
     Dates: start: 1990
  3. FOSAMAX [Suspect]
     Active Substance: ALENDRONATE SODIUM
     Indication: OSTEOPOROSIS
  4. ALENDRONATE SODIUM. [Suspect]
     Active Substance: ALENDRONATE SODIUM
     Indication: OSTEOPENIA
     Dosage: 70 MG, QW
     Route: 048
     Dates: start: 20080204, end: 201006
  5. PRILOSEC [Concomitant]
     Active Substance: OMEPRAZOLE MAGNESIUM
     Indication: GASTROOESOPHAGEAL REFLUX DISEASE
     Dosage: 20 MG, BID
     Dates: start: 1995
  6. FUROSEMIDE. [Concomitant]
     Active Substance: FUROSEMIDE
     Indication: FLUID RETENTION
     Dosage: UNK
     Dates: start: 1990
  7. CALCIUM (UNSPECIFIED) [Concomitant]
     Active Substance: CALCIUM
     Indication: OSTEOPENIA
     Dosage: 600 MG, QD
     Dates: start: 1990
  8. ALENDRONATE SODIUM. [Suspect]
     Active Substance: ALENDRONATE SODIUM
     Indication: OSTEOPOROSIS
  9. ALLOPURINOL. [Concomitant]
     Active Substance: ALLOPURINOL
     Indication: GOUT
     Dosage: UNK
     Dates: start: 1990

REACTIONS (31)
  - Intramedullary rod insertion [Unknown]
  - Fall [Unknown]
  - Arthralgia [Unknown]
  - Arthralgia [Unknown]
  - Spondylolisthesis [Unknown]
  - Contusion [Unknown]
  - Osteonecrosis of jaw [Unknown]
  - Stress urinary incontinence [Unknown]
  - Type 2 diabetes mellitus [Unknown]
  - Fluid retention [Recovering/Resolving]
  - Cerumen impaction [Unknown]
  - Diarrhoea [Recovering/Resolving]
  - Blood uric acid increased [Unknown]
  - Anaemia of chronic disease [Not Recovered/Not Resolved]
  - Femur fracture [Recovered/Resolved]
  - Low turnover osteopathy [Unknown]
  - Medical device discomfort [Unknown]
  - Urinary tract infection [Unknown]
  - Dyspnoea [Unknown]
  - Fibrocystic breast disease [Unknown]
  - Urinary tract infection [Unknown]
  - Dysuria [Unknown]
  - Increased tendency to bruise [Unknown]
  - Renal failure [Recovering/Resolving]
  - Alveoloplasty [Unknown]
  - Weight increased [Unknown]
  - Intervertebral disc degeneration [Unknown]
  - Lumbar radiculopathy [Unknown]
  - Hiatus hernia [Unknown]
  - Mean cell volume increased [Unknown]
  - Appendicectomy [Unknown]

NARRATIVE: CASE EVENT DATE: 20020501
